FAERS Safety Report 4722497-X (Version None)
Quarter: 2005Q3

REPORT INFORMATION
  Report Type: 
  Country: None (occurrence: None)
  Receive Date: 20050722
  Receipt Date: 20050518
  Transmission Date: 20060218
  Serious: No
  Sender: FDA-Public Use
  Company Number: US-GLAXOSMITHKLINE-A0559162A

PATIENT
  Age: 47 Year
  Sex: Female

DRUGS (2)
  1. AVANDIA [Suspect]
     Dosage: 8MG PER DAY
     Route: 048
  2. VITAMIN B-12 [Concomitant]

REACTIONS (3)
  - HYPOTRICHOSIS [None]
  - OEDEMA PERIPHERAL [None]
  - WEIGHT INCREASED [None]
